FAERS Safety Report 8944852 (Version 2)
Quarter: 2013Q2

REPORT INFORMATION
  Report Type: Spontaneous
  Country: US (occurrence: US)
  Receive Date: 20121204
  Receipt Date: 20130502
  Transmission Date: 20140414
  Serious: No
  Sender: FDA-Public Use
  Company Number: US-009507513-1212USA001159

PATIENT
  Age: 73 Year
  Sex: Female
  Weight: 53.52 kg

DRUGS (2)
  1. CLARITIN REDITABS [Suspect]
     Indication: NASOPHARYNGITIS
     Dosage: 10 MG, ONCE
     Route: 048
     Dates: start: 20121123
  2. CLARITIN REDITABS [Suspect]
     Indication: HYPERSENSITIVITY
     Dosage: 10 MG, ONCE
     Route: 048
     Dates: start: 20121124

REACTIONS (3)
  - Overdose [Unknown]
  - No adverse event [Unknown]
  - Off label use [Unknown]
